FAERS Safety Report 25353713 (Version 1)
Quarter: 2025Q2

REPORT INFORMATION
  Report Type: Spontaneous
  Country: FR (occurrence: FR)
  Receive Date: 20250523
  Receipt Date: 20250523
  Transmission Date: 20250717
  Serious: Yes (Life-Threatening, Hospitalization)
  Sender: MYLAN
  Company Number: None

PATIENT
  Age: 61 Year
  Sex: Male
  Weight: 76 kg

DRUGS (4)
  1. LEVETIRACETAM [Suspect]
     Active Substance: LEVETIRACETAM
     Indication: Agitation
     Dates: start: 20250421, end: 20250421
  2. LEVETIRACETAM [Suspect]
     Active Substance: LEVETIRACETAM
     Route: 048
     Dates: start: 20250421, end: 20250421
  3. LEVETIRACETAM [Suspect]
     Active Substance: LEVETIRACETAM
     Route: 048
     Dates: start: 20250421, end: 20250421
  4. LEVETIRACETAM [Suspect]
     Active Substance: LEVETIRACETAM
     Dates: start: 20250421, end: 20250421

REACTIONS (2)
  - Coma [Recovered/Resolved]
  - Respiratory depression [Recovered/Resolved]

NARRATIVE: CASE EVENT DATE: 20250421
